APPROVED DRUG PRODUCT: MEDROXYPROGESTERONE ACETATE
Active Ingredient: MEDROXYPROGESTERONE ACETATE
Strength: 10MG
Dosage Form/Route: TABLET;ORAL
Application: A088484 | Product #001
Applicant: UPSHER SMITH LABORATORIES LLC
Approved: Jul 26, 1984 | RLD: No | RS: No | Type: DISCN